FAERS Safety Report 24771131 (Version 1)
Quarter: 2024Q4

REPORT INFORMATION
  Report Type: Spontaneous
  Country: US (occurrence: US)
  Receive Date: 20241224
  Receipt Date: 20241224
  Transmission Date: 20250115
  Serious: Yes (Other)
  Sender: OTSUKA
  Company Number: US-OTSUKA-2024_034018

PATIENT
  Sex: Female

DRUGS (3)
  1. REXULTI [Suspect]
     Active Substance: BREXPIPRAZOLE
     Indication: Product used for unknown indication
     Dosage: 1 MG
     Route: 065
     Dates: start: 202210
  2. REXULTI [Suspect]
     Active Substance: BREXPIPRAZOLE
     Dosage: 0.5 MG, QD (TAKE 1 TABLET BY MOUTH EVERY MORNING  )
     Route: 048
     Dates: start: 20230322
  3. REXULTI [Suspect]
     Active Substance: BREXPIPRAZOLE
     Dosage: 1 DF, QOD (TAKING ONE TABLET EVERY OTHER DAY )
     Route: 065

REACTIONS (5)
  - Hunger [Not Recovered/Not Resolved]
  - Increased appetite [Not Recovered/Not Resolved]
  - Weight increased [Not Recovered/Not Resolved]
  - Polyuria [Not Recovered/Not Resolved]
  - Inappropriate schedule of product administration [Unknown]
